FAERS Safety Report 8450698-6 (Version None)
Quarter: 2012Q2

REPORT INFORMATION
  Report Type: 
  Country: None (occurrence: None)
  Receive Date: 20120615
  Receipt Date: 20120615
  Transmission Date: 20120825
  Serious: Yes (Other)
  Sender: FDA-Public Use
  Company Number: None

PATIENT
  Sex: Male
  Weight: 79.8331 kg

DRUGS (3)
  1. AMLODIPINE [Suspect]
     Indication: HYPERTENSION
     Dosage: 5MG DAILY PO
     Route: 048
     Dates: start: 20110323, end: 20111009
  2. AMLODIPINE [Suspect]
     Indication: HYPERTENSION
     Dosage: 5MG DAILY PO
     Route: 048
     Dates: start: 20111010, end: 20120201
  3. HYDROCODONE BITARTRATE + ACETAMINOPHEN [Concomitant]

REACTIONS (4)
  - PRODUCT QUALITY ISSUE [None]
  - DYSPEPSIA [None]
  - NAUSEA [None]
  - ABDOMINAL PAIN [None]
